FAERS Safety Report 4524049-3 (Version None)
Quarter: 2004Q4

REPORT INFORMATION
  Report Type: 
  Country: None (occurrence: None)
  Receive Date: 20041209
  Receipt Date: 20041126
  Transmission Date: 20050328
  Serious: Yes (Other)
  Sender: FDA-Public Use
  Company Number: 2004-BP-13001YA

PATIENT
  Age: 75 Year
  Sex: Male

DRUGS (9)
  1. HARNAL               (TAMSULOSIN) [Suspect]
     Indication: BENIGN PROSTATIC HYPERPLASIA
     Dosage: 0.1 MG (0.1 MG QD, PO)  CAPSULES
     Route: 048
     Dates: start: 20041105, end: 20041119
  2. PREDNISOLONE [Concomitant]
  3. REBAMIPIDE (REBAMIPIDE) [Concomitant]
  4. FAMOTIDINE [Concomitant]
  5. CALCITRIOL [Concomitant]
  6. DIFENIDOL HYDROCHLORIDE [Concomitant]
  7. METOCLOPRAMIDE [Concomitant]
  8. PRAVASTATIN SODIUM [Concomitant]
  9. ETIZOLAM (ETIZOLAM) [Concomitant]

REACTIONS (2)
  - DIZZINESS [None]
  - HYPOTENSION [None]
